FAERS Safety Report 18839861 (Version 4)
Quarter: 2021Q2

REPORT INFORMATION
  Report Type: Report from Study
  Country: CL (occurrence: CL)
  Receive Date: 20210203
  Receipt Date: 20210608
  Transmission Date: 20210717
  Serious: Yes (Other)
  Sender: FDA-Public Use
  Company Number: CL-AMGEN-CHLSL2021014731

PATIENT
  Age: 64 Year
  Sex: Female

DRUGS (2)
  1. COVID?19 VACCINE [Concomitant]
     Dosage: UNK
     Dates: start: 20210310
  2. AMGEVITA [Suspect]
     Active Substance: ADALIMUMAB
     Indication: RHEUMATOID ARTHRITIS
     Dosage: 40 MILLIGRAM, CYCLICAL
     Route: 058
     Dates: start: 20210114

REACTIONS (11)
  - Blindness [Unknown]
  - Visual impairment [Unknown]
  - Dizziness [Not Recovered/Not Resolved]
  - Mental impairment [Unknown]
  - Mycobacterium tuberculosis complex test positive [Not Recovered/Not Resolved]
  - Pain in extremity [Unknown]
  - Treatment noncompliance [Not Recovered/Not Resolved]
  - Hypoaesthesia [Unknown]
  - Headache [Not Recovered/Not Resolved]
  - Balance disorder [Unknown]
  - Suspected COVID-19 [Unknown]

NARRATIVE: CASE EVENT DATE: 20210118
